FAERS Safety Report 5821355-7 (Version None)
Quarter: 2008Q3

REPORT INFORMATION
  Report Type: 
  Country: None (occurrence: None)
  Receive Date: 20080724
  Receipt Date: 20080716
  Transmission Date: 20090109
  Serious: Yes (Life-Threatening, Hospitalization)
  Sender: FDA-Public Use
  Company Number: CA-JNJFOC-20080703804

PATIENT
  Age: 41 Year
  Sex: Female

DRUGS (3)
  1. ACETAMINOPHEN [Suspect]
  2. ACETAMINOPHEN [Suspect]
     Indication: DRUG USE FOR UNKNOWN INDICATION
  3. ALCOHOL [Suspect]
     Indication: DRUG USE FOR UNKNOWN INDICATION
     Dosage: 16-20 DRINKS PER WEEK

REACTIONS (5)
  - ACUTE HEPATIC FAILURE [None]
  - BRAIN OEDEMA [None]
  - INTENTIONAL OVERDOSE [None]
  - RENAL IMPAIRMENT [None]
  - RESPIRATORY DISTRESS [None]
